FAERS Safety Report 5423137-7 (Version None)
Quarter: 2007Q3

REPORT INFORMATION
  Report Type: 
  Country: None (occurrence: None)
  Receive Date: 20070821
  Receipt Date: 20070521
  Transmission Date: 20080115
  Serious: Yes (Other)
  Sender: FDA-Public Use
  Company Number: 16674

PATIENT
  Sex: Male
  Weight: 87.5 kg

DRUGS (7)
  1. FLUDARABINE PHOSPHATE [Suspect]
     Indication: B-CELL LYMPHOMA
     Dosage: 1 ONCE IV
     Route: 042
     Dates: start: 20040619
  2. NOVANTRONE [Suspect]
     Indication: B-CELL LYMPHOMA
     Dosage: 1 ONCE IV
     Route: 042
     Dates: start: 20040619
  3. ALLOPURINOL [Concomitant]
  4. DEXAMETHASONE [Concomitant]
  5. PARACETAMOL [Concomitant]
  6. SPIRONOLACTONE [Concomitant]
  7. SULFAMETHOXAZOLE [Concomitant]

REACTIONS (6)
  - ASCITES [None]
  - CONSTIPATION [None]
  - DEEP VEIN THROMBOSIS [None]
  - FEBRILE NEUTROPENIA [None]
  - INTESTINAL OBSTRUCTION [None]
  - WHITE BLOOD CELL COUNT DECREASED [None]
